FAERS Safety Report 6626434-2 (Version None)
Quarter: 2010Q1

REPORT INFORMATION
  Report Type: 
  Country: None (occurrence: None)
  Receive Date: 20100310
  Receipt Date: 20091117
  Transmission Date: 20100710
  Serious: No
  Sender: FDA-Public Use
  Company Number: US-ABBOTT-09P-163-0602919-00

PATIENT
  Sex: Female
  Weight: 97.61 kg

DRUGS (17)
  1. LUPRON DEPOT [Suspect]
     Indication: MENOPAUSE DELAYED
     Dates: start: 20090701
  2. FEMARA [Concomitant]
     Indication: HORMONE SUPPRESSION THERAPY
     Dates: start: 20090801
  3. RITALIN [Concomitant]
     Indication: VISION BLURRED
  4. RITALIN [Concomitant]
     Indication: ASTHENIA
  5. CELEXA [Concomitant]
     Indication: DEPRESSION
  6. HYDROCHLOROTHIAZIDE [Concomitant]
     Indication: OEDEMA
  7. AMBIEN [Concomitant]
     Indication: INSOMNIA
  8. POTASSIUM [Concomitant]
     Indication: BLOOD POTASSIUM DECREASED
  9. POTASSIUM [Concomitant]
     Indication: BONE DENSITY DECREASED
  10. DULCOLAX [Concomitant]
     Indication: CONSTIPATION
  11. CLONAZEPAM [Concomitant]
     Indication: ANXIETY
  12. COMPAZINE [Concomitant]
     Indication: NAUSEA
  13. VITAMIN E [Concomitant]
     Indication: DRUG USE FOR UNKNOWN INDICATION
  14. VITAMIN B6 [Concomitant]
     Indication: DRUG USE FOR UNKNOWN INDICATION
  15. VITAMIN D [Concomitant]
     Indication: DRUG USE FOR UNKNOWN INDICATION
  16. CALCIUM [Concomitant]
     Indication: DRUG USE FOR UNKNOWN INDICATION
  17. ZOMETA [Concomitant]
     Indication: BONE DENSITY DECREASED

REACTIONS (2)
  - DRUG INEFFECTIVE [None]
  - MENOPAUSE DELAYED [None]
